FAERS Safety Report 9046678 (Version 1)
Quarter: 2013Q1

REPORT INFORMATION
  Report Type: Spontaneous
  Country: US (occurrence: US)
  Receive Date: 20130204
  Receipt Date: 20130204
  Transmission Date: 20140127
  Serious: No
  Sender: FDA-Public Use
  Company Number: US-BIOGENIDEC-2013BI008045

PATIENT
  Age: 54 Year
  Sex: Female

DRUGS (2)
  1. TYSABRI [Suspect]
     Indication: MULTIPLE SCLEROSIS
     Route: 042
     Dates: start: 20100930
  2. BG-12 [Concomitant]
     Indication: MULTIPLE SCLEROSIS

REACTIONS (6)
  - Arthritis [Recovered/Resolved with Sequelae]
  - Feeling cold [Not Recovered/Not Resolved]
  - Sciatica [Recovered/Resolved]
  - Osteoporosis [Recovered/Resolved with Sequelae]
  - Anxiety [Unknown]
  - Fatigue [Not Recovered/Not Resolved]
